FAERS Safety Report 9806239 (Version 1)
Quarter: 2014Q1

REPORT INFORMATION
  Report Type: Spontaneous
  Country: US (occurrence: US)
  Receive Date: 20140109
  Receipt Date: 20140109
  Transmission Date: 20141002
  Serious: Yes (Death, Hospitalization)
  Sender: FDA-Public Use
  Company Number: US-ASTRAZENECA-2014SE01471

PATIENT
  Age: 54 Year
  Sex: Female

DRUGS (10)
  1. QUETIAPINE [Suspect]
     Route: 048
  2. VENLAFAXINE [Suspect]
     Route: 048
  3. MORPHINE [Suspect]
     Route: 048
  4. ACETAMINOPHEN / HYDROCODONE [Suspect]
     Route: 048
  5. DIPHENHYDRAMINE [Suspect]
     Route: 048
  6. ALPRAZOLAM [Suspect]
     Route: 048
  7. LAMOTRIGINE [Suspect]
     Route: 048
  8. GABAPENTIN [Suspect]
     Route: 048
  9. MEPROBAMATE [Suspect]
     Route: 048
  10. CARISOPRODOL [Suspect]
     Route: 048

REACTIONS (3)
  - Toxicity to various agents [Fatal]
  - Cardio-respiratory arrest [Fatal]
  - Completed suicide [Fatal]
